FAERS Safety Report 4828578-4 (Version None)
Quarter: 2005Q4

REPORT INFORMATION
  Report Type: 
  Country: None (occurrence: None)
  Receive Date: 20051115
  Receipt Date: 20051110
  Transmission Date: 20060501
  Serious: Yes (Other)
  Sender: FDA-Public Use
  Company Number: 2005PK02113

PATIENT
  Sex: Male

DRUGS (1)
  1. BELOC ZOK MITE [Suspect]
     Indication: HYPERTENSION
     Route: 048

REACTIONS (1)
  - ANAPHYLACTIC REACTION [None]
